FAERS Safety Report 25970337 (Version 1)
Quarter: 2025Q4

REPORT INFORMATION
  Report Type: Report from Study
  Country: CN (occurrence: CN)
  Receive Date: 20251028
  Receipt Date: 20251028
  Transmission Date: 20260119
  Serious: Yes (Other)
  Sender: ROCHE
  Company Number: CN-ROCHE-10000416336

PATIENT

DRUGS (1)
  1. ATEZOLIZUMAB [Suspect]
     Active Substance: ATEZOLIZUMAB
     Indication: Small cell lung cancer
     Route: 065

REACTIONS (14)
  - Neutrophil count decreased [Unknown]
  - White blood cell count decreased [Unknown]
  - Platelet count decreased [Unknown]
  - Amylase increased [Unknown]
  - Alanine aminotransferase increased [Unknown]
  - Aspartate aminotransferase increased [Unknown]
  - Vomiting [Unknown]
  - Hyperuricaemia [Unknown]
  - Hypothyroidism [Unknown]
  - Blood bilirubin increased [Unknown]
  - Hypokalaemia [Unknown]
  - Rash [Unknown]
  - Diarrhoea [Unknown]
  - Hyperthyroidism [Unknown]
